FAERS Safety Report 4511525-2 (Version None)
Quarter: 2004Q4

REPORT INFORMATION
  Report Type: 
  Country: None (occurrence: None)
  Receive Date: 20041129
  Receipt Date: 20040909
  Transmission Date: 20050328
  Serious: No
  Sender: FDA-Public Use
  Company Number: US-BRISTOL-MYERS SQUIBB COMPANY-12698858

PATIENT

DRUGS (2)
  1. ABILIFY [Suspect]
  2. LITHIUM [Concomitant]

REACTIONS (2)
  - AKATHISIA [None]
  - FEELING JITTERY [None]
